FAERS Safety Report 4768716-5 (Version None)
Quarter: 2005Q3

REPORT INFORMATION
  Report Type: 
  Country: None (occurrence: None)
  Receive Date: 20050914
  Receipt Date: 20050909
  Transmission Date: 20060218
  Serious: Yes (Other)
  Sender: FDA-Public Use
  Company Number: US-GLAXOSMITHKLINE-A0573610A

PATIENT
  Age: 33 Year
  Sex: Female

DRUGS (4)
  1. REQUIP [Suspect]
     Indication: RESTLESS LEGS SYNDROME
     Route: 048
     Dates: start: 20050801, end: 20050801
  2. LASIX [Concomitant]
  3. CEPHALEXIN [Concomitant]
  4. TARKA [Concomitant]

REACTIONS (5)
  - DRY MOUTH [None]
  - GINGIVAL SWELLING [None]
  - HALLUCINATION [None]
  - SPEECH DISORDER [None]
  - VISUAL DISTURBANCE [None]
